FAERS Safety Report 20883451 (Version 1)
Quarter: 2022Q2

REPORT INFORMATION
  Report Type: Report from Study
  Country: US (occurrence: US)
  Receive Date: 20220527
  Receipt Date: 20220527
  Transmission Date: 20220721
  Serious: Yes (Other)
  Sender: FDA-Public Use
  Company Number: US-BRISTOL-MYERS SQUIBB COMPANY-2022-023825

PATIENT
  Age: 32 Year
  Sex: Female

DRUGS (2)
  1. ZEPOSIA [Suspect]
     Active Substance: OZANIMOD HYDROCHLORIDE
     Indication: Multiple sclerosis
     Dosage: START DATE WAS REPORTED AS  18-FEB-2022
     Route: 048
  2. ZEPOSIA [Suspect]
     Active Substance: OZANIMOD HYDROCHLORIDE
     Dosage: 19-MAR-2022
     Route: 048
     Dates: end: 20220321

REACTIONS (3)
  - Pruritus [Recovering/Resolving]
  - Jaundice [Recovering/Resolving]
  - Headache [Recovering/Resolving]

NARRATIVE: CASE EVENT DATE: 20220217
